FAERS Safety Report 23366604 (Version 1)
Quarter: 2024Q1

REPORT INFORMATION
  Report Type: Report from Study
  Country: IL (occurrence: IL)
  Receive Date: 20240104
  Receipt Date: 20240104
  Transmission Date: 20240410
  Serious: Yes (Other)
  Sender: FDA-Public Use
  Company Number: IL-TAKEDA-2024TUS000782

PATIENT
  Sex: Male

DRUGS (1)
  1. VELAGLUCERASE ALFA [Suspect]
     Active Substance: VELAGLUCERASE ALFA
     Indication: Gaucher^s disease
     Dosage: 14 DOSAGE FORM, Q2WEEKS
     Route: 042
     Dates: start: 20131201, end: 20231213

REACTIONS (1)
  - Parkinson^s disease [Not Recovered/Not Resolved]
